FAERS Safety Report 4564866-7 (Version None)
Quarter: 2005Q1

REPORT INFORMATION
  Report Type: 
  Country: None (occurrence: None)
  Receive Date: 20050128
  Receipt Date: 20050121
  Transmission Date: 20050727
  Serious: Yes (Hospitalization)
  Sender: FDA-Public Use
  Company Number: US-MERCK-0501USA03533

PATIENT
  Age: 51 Year
  Sex: Female
  Weight: 118 kg

DRUGS (9)
  1. VIOXX [Suspect]
     Route: 048
  2. PROZAC [Concomitant]
     Route: 065
  3. CLONIDINE [Concomitant]
     Route: 065
  4. LOTREL [Concomitant]
     Route: 065
  5. ASPIRIN [Concomitant]
     Route: 065
  6. PROVENTIL [Concomitant]
     Route: 065
  7. COREG [Concomitant]
     Route: 065
  8. INDOMETHACIN [Concomitant]
     Route: 065
  9. LASIX [Concomitant]
     Route: 065

REACTIONS (18)
  - ANAEMIA [None]
  - ANGINA UNSTABLE [None]
  - ANXIETY [None]
  - BRADYCARDIA [None]
  - CHEST PAIN [None]
  - CHRONIC OBSTRUCTIVE PULMONARY DISEASE [None]
  - COLONIC POLYP [None]
  - DIABETES MELLITUS [None]
  - DIVERTICULUM [None]
  - FALL [None]
  - HEADACHE [None]
  - HYPERTENSION [None]
  - HYPERTENSIVE HEART DISEASE [None]
  - MALIGNANT HYPERTENSION [None]
  - OVARIAN MASS [None]
  - PAIN IN EXTREMITY [None]
  - SLEEP APNOEA SYNDROME [None]
  - UMBILICAL HERNIA [None]
